FAERS Safety Report 14881494 (Version 3)
Quarter: 2020Q3

REPORT INFORMATION
  Report Type: Spontaneous
  Country: SA (occurrence: SA)
  Receive Date: 20180511
  Receipt Date: 20200728
  Transmission Date: 20201104
  Serious: Yes (Death)
  Sender: FDA-Public Use
  Company Number: SA-PFIZER INC-2018185443

PATIENT
  Age: 59 Year
  Sex: Male

DRUGS (5)
  1. TYGACIL [Suspect]
     Active Substance: TIGECYCLINE
     Indication: KLEBSIELLA INFECTION
     Dosage: UNK
     Dates: start: 2017
  2. AMIKACIN. [Suspect]
     Active Substance: AMIKACIN
     Indication: KLEBSIELLA INFECTION
     Dosage: UNK
     Dates: start: 2017
  3. CIPROFLOXACIN. [Suspect]
     Active Substance: CIPROFLOXACIN
     Indication: KLEBSIELLA INFECTION
     Dosage: UNK
     Dates: start: 2017
  4. COLISTIN [Suspect]
     Active Substance: COLISTIN
     Indication: KLEBSIELLA INFECTION
     Dosage: UNK
     Dates: start: 2017
  5. ZAVICEFTA [Suspect]
     Active Substance: AVIBACTAM SODIUM\CEFTAZIDIME
     Indication: KLEBSIELLA INFECTION
     Dosage: 2.5 G, 3X/DAY (EVERY 8 H)
     Route: 042
     Dates: start: 2017

REACTIONS (1)
  - Drug ineffective [Fatal]

NARRATIVE: CASE EVENT DATE: 2017
